FAERS Safety Report 12667279 (Version 1)
Quarter: 2016Q3

REPORT INFORMATION
  Report Type: Spontaneous
  Country: US (occurrence: None)
  Receive Date: 20160818
  Receipt Date: 20160818
  Transmission Date: 20161109
  Serious: Yes (Other)
  Sender: FDA-Public Use
  Company Number: None

PATIENT
  Age: 46 Year
  Sex: Female
  Weight: 82.56 kg

DRUGS (6)
  1. MORPHINE 10 MG/ML WEST-WARD [Suspect]
     Active Substance: MORPHINE
     Indication: HEPATOBILIARY SCAN
     Route: 042
     Dates: start: 20160817
  2. RISPERDONE [Concomitant]
     Active Substance: RISPERIDONE
  3. ONDANSETRON [Concomitant]
     Active Substance: ONDANSETRON
  4. CIPROFLOXACIN. [Concomitant]
     Active Substance: CIPROFLOXACIN
  5. TC 99M MEBROFENIN [Concomitant]
  6. BENZTROPINE [Concomitant]
     Active Substance: BENZTROPINE

REACTIONS (3)
  - Injection site discolouration [None]
  - Chest discomfort [None]
  - Feeling abnormal [None]

NARRATIVE: CASE EVENT DATE: 20160817
